FAERS Safety Report 19908821 (Version 1)
Quarter: 2021Q4

REPORT INFORMATION
  Report Type: Report from Study
  Country: CA (occurrence: CA)
  Receive Date: 20211001
  Receipt Date: 20211001
  Transmission Date: 20220303
  Serious: Yes (Other)
  Sender: FDA-Public Use
  Company Number: CA-MYLANLABS-2021M1067527

PATIENT
  Age: 60 Year
  Sex: Female

DRUGS (1)
  1. HULIO [Suspect]
     Active Substance: ADALIMUMAB-FKJP
     Indication: Rheumatoid arthritis
     Dosage: UNK UNK, BIWEEKLY
     Route: 065

REACTIONS (4)
  - Drug ineffective [Unknown]
  - Arthritis [Unknown]
  - Psoriasis [Unknown]
  - Vein disorder [Unknown]
